FAERS Safety Report 11342747 (Version 1)
Quarter: 2015Q3

REPORT INFORMATION
  Report Type: Spontaneous
  Country: JP (occurrence: JP)
  Receive Date: 20150805
  Receipt Date: 20150805
  Transmission Date: 20151125
  Serious: Yes (Other)
  Sender: FDA-Public Use
  Company Number: PHJP2015JP011333

PATIENT
  Age: 81 Year
  Sex: Female

DRUGS (2)
  1. DIART [Suspect]
     Active Substance: AZOSEMIDE
     Indication: APLASIA PURE RED CELL
     Dosage: 120 MG, UNK
     Route: 048
     Dates: end: 20150630
  2. NEORAL [Suspect]
     Active Substance: CYCLOSPORINE
     Indication: APLASIA PURE RED CELL
     Dosage: 25 MG, BID (MORNING AND EVENING)
     Route: 048
     Dates: end: 20150703

REACTIONS (3)
  - Dehydration [Recovered/Resolved]
  - Off label use [Unknown]
  - Acute kidney injury [Recovered/Resolved]

NARRATIVE: CASE EVENT DATE: 20150630
